FAERS Safety Report 10077040 (Version 3)
Quarter: 2014Q2

REPORT INFORMATION
  Report Type: Spontaneous
  Country: US (occurrence: US)
  Receive Date: 20140414
  Receipt Date: 20140627
  Transmission Date: 20141212
  Serious: No
  Sender: FDA-Public Use
  Company Number: US-009507513-0912USA01855

PATIENT
  Age: 73 Year
  Sex: Female
  Weight: 69.85 kg

DRUGS (9)
  1. JANUMET [Suspect]
     Indication: DIABETES MELLITUS
     Dosage: 1000MG/50
     Route: 048
     Dates: start: 20090910, end: 20091214
  2. JANUMET [Suspect]
     Dosage: 1000MG/50
     Route: 048
     Dates: start: 20100202
  3. GLYBURIDE [Concomitant]
     Dosage: 5 MG, UNK
  4. ALTACE [Concomitant]
  5. NEXIUM [Concomitant]
  6. METFORMIN [Concomitant]
     Dosage: 1000 MG, BID
     Dates: start: 20091215, end: 20100108
  7. HYDRALAZINE [Concomitant]
     Dosage: 50 MG, UNK
  8. METOPROLOL [Concomitant]
     Dosage: 100 MG, UNK
  9. RAMIPRIL [Concomitant]
     Dosage: 10 MG, UNK

REACTIONS (17)
  - Excessive eye blinking [Not Recovered/Not Resolved]
  - Dyskinesia [Not Recovered/Not Resolved]
  - Blood pressure fluctuation [Not Recovered/Not Resolved]
  - Blood pressure increased [Not Recovered/Not Resolved]
  - Headache [Not Recovered/Not Resolved]
  - Anxiety [Recovered/Resolved]
  - Peripheral swelling [Not Recovered/Not Resolved]
  - Blood glucose increased [Unknown]
  - Fatigue [Not Recovered/Not Resolved]
  - Eye movement disorder [Not Recovered/Not Resolved]
  - Pain in extremity [Not Recovered/Not Resolved]
  - Joint swelling [Not Recovered/Not Resolved]
  - Arthralgia [Not Recovered/Not Resolved]
  - Product taste abnormal [Not Recovered/Not Resolved]
  - Cough [Not Recovered/Not Resolved]
  - Dry throat [Not Recovered/Not Resolved]
  - Tardive dyskinesia [Not Recovered/Not Resolved]
